FAERS Safety Report 11601718 (Version 1)
Quarter: 2015Q4

REPORT INFORMATION
  Report Type: Spontaneous
  Country: US (occurrence: US)
  Receive Date: 20151006
  Receipt Date: 20151006
  Transmission Date: 20160304
  Serious: No
  Sender: FDA-Public Use
  Company Number: US-AMGEN-USASP2015048538

PATIENT
  Sex: Female

DRUGS (4)
  1. BYETTA [Concomitant]
     Active Substance: EXENATIDE
     Dosage: UNK UNK, QD
  2. METFORMIN [Concomitant]
     Active Substance: METFORMIN HYDROCHLORIDE
     Dosage: UNK UNK, QD
  3. VITAMIN D                          /00107901/ [Concomitant]
     Active Substance: ERGOCALCIFEROL
     Dosage: UNK UNK, QMO
  4. PROLIA [Suspect]
     Active Substance: DENOSUMAB
     Indication: PRODUCT USED FOR UNKNOWN INDICATION
     Dosage: UNK
     Route: 065

REACTIONS (10)
  - Blood thyroid stimulating hormone increased [Unknown]
  - Alopecia [Unknown]
  - Feeling abnormal [Unknown]
  - Glycosylated haemoglobin increased [Unknown]
  - Dehydration [Unknown]
  - Mobility decreased [Unknown]
  - Blood parathyroid hormone increased [Unknown]
  - Vitamin D increased [Unknown]
  - Pain [Unknown]
  - Dysuria [Unknown]
